FAERS Safety Report 12117482 (Version 1)
Quarter: 2016Q1

REPORT INFORMATION
  Report Type: Spontaneous
  Country: US (occurrence: US)
  Receive Date: 20160225
  Receipt Date: 20160225
  Transmission Date: 20160526
  Serious: Yes (Hospitalization)
  Sender: FDA-Public Use
  Company Number: US-AMGEN-USASP2016011511

PATIENT
  Age: 61 Year
  Sex: Female

DRUGS (2)
  1. IMLYGIC [Suspect]
     Active Substance: TALIMOGENE LAHERPAREPVEC
     Indication: PRODUCT USED FOR UNKNOWN INDICATION
     Dosage: ^10X6TH^, UNK
     Route: 065
     Dates: start: 201601
  2. IMLYGIC [Suspect]
     Active Substance: TALIMOGENE LAHERPAREPVEC
     Dosage: 10X8TH UNK
     Route: 065
     Dates: start: 20160129

REACTIONS (7)
  - Asthma [Unknown]
  - Dyspnoea [Unknown]
  - Pyrexia [Unknown]
  - Cough [Unknown]
  - Chills [Unknown]
  - Bronchitis [Unknown]
  - Hypoxia [Unknown]

NARRATIVE: CASE EVENT DATE: 2016
